FAERS Safety Report 7035930-8 (Version None)
Quarter: 2010Q4

REPORT INFORMATION
  Report Type: 
  Country: None (occurrence: None)
  Receive Date: 20101008
  Receipt Date: 20100929
  Transmission Date: 20110411
  Serious: Yes (Life-Threatening, Other)
  Sender: FDA-Public Use
  Company Number: JP-ABBOTT-10P-087-0676567-00

PATIENT
  Age: 68 Year
  Sex: Male
  Weight: 64 kg

DRUGS (5)
  1. SEVOFLURANE [Suspect]
     Indication: MAINTENANCE OF ANAESTHESIA
     Dosage: DAILY
     Route: 055
  2. THIAMYLAL [Concomitant]
     Indication: INDUCTION OF ANAESTHESIA
     Dosage: 300MG DAILY
     Route: 065
  3. FENTANYL [Concomitant]
     Indication: PRODUCT USED FOR UNKNOWN INDICATION
     Dosage: 100MCG DAILY
     Route: 065
  4. VECURONIUM BROMIDE [Concomitant]
     Indication: INDUCTION AND MAINTENANCE OF ANAESTHESIA
     Dosage: 8MG DAILY
     Route: 065
  5. REMIFENTANIL [Concomitant]
     Indication: MAINTENANCE OF ANAESTHESIA
     Dosage: 0.15Y DAILY

REACTIONS (6)
  - BLOOD PRESSURE DECREASED [None]
  - BRADYCARDIA [None]
  - CARDIAC ARREST [None]
  - ELECTROCARDIOGRAM QRS COMPLEX PROLONGED [None]
  - VENTRICULAR EXTRASYSTOLES [None]
  - VENTRICULAR FIBRILLATION [None]
